FAERS Safety Report 5126699-2 (Version None)
Quarter: 2006Q4

REPORT INFORMATION
  Report Type: 
  Country: None (occurrence: None)
  Receive Date: 20061013
  Receipt Date: 20061002
  Transmission Date: 20070319
  Serious: Yes (Other)
  Sender: FDA-Public Use
  Company Number: 2006AC01796

PATIENT
  Age: 7 Year
  Sex: Male

DRUGS (3)
  1. LISINOPRIL [Suspect]
     Indication: PROTEINURIA
     Dosage: INCREASED FROM 0.09 MG/KG/DAY TO 0.17 MG/KG/DAY OVER TIME.
  2. LISINOPRIL [Interacting]
  3. LOSARTAN POSTASSIUM [Interacting]
     Indication: PROTEINURIA

REACTIONS (5)
  - BLOOD PRESSURE DECREASED [None]
  - DRUG INTERACTION [None]
  - FATIGUE [None]
  - RENAL FAILURE ACUTE [None]
  - THERAPY NON-RESPONDER [None]
